FAERS Safety Report 5043138-0 (Version None)
Quarter: 2006Q3

REPORT INFORMATION
  Report Type: 
  Country: None (occurrence: None)
  Receive Date: 20060705
  Receipt Date: 20060621
  Transmission Date: 20061208
  Serious: Yes (Death, Other)
  Sender: FDA-Public Use
  Company Number: PHBS2006JP09373

PATIENT
  Age: 42 Year
  Sex: Female

DRUGS (4)
  1. SANDIMMUNE [Suspect]
     Indication: RENAL TRANSPLANT
     Dosage: 50 MG/D
     Route: 048
  2. PREDNISOLONE [Concomitant]
     Indication: RENAL TRANSPLANT
  3. AZATHIOPRINE [Concomitant]
     Indication: RENAL TRANSPLANT
  4. CYCLOPHOSPHAMIDE [Concomitant]

REACTIONS (7)
  - ANAPLASTIC LARGE CELL LYMPHOMA T- AND NULL-CELL TYPES [None]
  - BONE MARROW DISORDER [None]
  - DIFFUSE LARGE B-CELL LYMPHOMA [None]
  - EPSTEIN-BARR VIRUS INFECTION [None]
  - LYMPHADENOPATHY [None]
  - RESPIRATORY FAILURE [None]
  - SKIN DISORDER [None]
